FAERS Safety Report 6335040-9 (Version None)
Quarter: 2009Q3

REPORT INFORMATION
  Report Type: 
  Country: None (occurrence: None)
  Receive Date: 20090831
  Receipt Date: 20090824
  Transmission Date: 20100115
  Serious: Yes (Hospitalization, Congenital Anomaly)
  Sender: FDA-Public Use
  Company Number: A0678470A

PATIENT
  Sex: Male

DRUGS (4)
  1. PAXIL [Suspect]
     Indication: ANXIETY
     Dates: start: 20031001, end: 20070101
  2. VITAMIN TAB [Concomitant]
     Indication: PREGNANCY
     Dates: start: 20011001
  3. ALPRAZOLAM [Concomitant]
     Indication: ANXIETY
     Dosage: 1MG AS REQUIRED
     Dates: start: 20010101, end: 20060101
  4. IRON SUPPLEMENT [Concomitant]

REACTIONS (8)
  - ATRIAL SEPTAL DEFECT [None]
  - CONGENITAL MITRAL VALVE INCOMPETENCE [None]
  - CONGENITAL TRICUSPID VALVE INCOMPETENCE [None]
  - DRUG EXPOSURE DURING PREGNANCY [None]
  - HYDROCEPHALUS [None]
  - MALFORMATION VENOUS [None]
  - PERSISTENT FOETAL CIRCULATION [None]
  - RESPIRATORY RATE DECREASED [None]
